FAERS Safety Report 24917093 (Version 2)
Quarter: 2025Q3

REPORT INFORMATION
  Report Type: Spontaneous
  Country: EU (occurrence: EU)
  Receive Date: 20250203
  Receipt Date: 20250810
  Transmission Date: 20251020
  Serious: Yes (Hospitalization, Other)
  Sender: ALEXION PHARMACEUTICALS
  Company Number: None

PATIENT
  Age: 71 Year
  Sex: Female

DRUGS (2)
  1. IMFINZI [Interacting]
     Active Substance: DURVALUMAB
     Indication: Lung carcinoma cell type unspecified stage IV
     Dates: start: 20240801, end: 20240827
  2. OMNIPAQUE [Interacting]
     Active Substance: IOHEXOL
     Indication: Computerised tomogram head
     Dates: start: 20240419, end: 20240419

REACTIONS (3)
  - Immune-mediated thyroiditis [Recovering/Resolving]
  - Condition aggravated [Recovering/Resolving]
  - Toxic nodular goitre [Recovering/Resolving]

NARRATIVE: CASE EVENT DATE: 20240812
